FAERS Safety Report 4041289 (Version 2)
Quarter: 2013Q2

REPORT INFORMATION
  Report Type: Spontaneous
  Country: JP (occurrence: JP)
  Receive Date: 20031211
  Receipt Date: 20130605
  Transmission Date: 20140414
  Serious: No
  Sender: FDA-Public Use
  Company Number: JP-GLAXOSMITHKLINE-B0310519A

PATIENT
  Age: 82 Year
  Sex: Male

DRUGS (12)
  1. HYCAMTIN [Suspect]
     Indication: SMALL CELL LUNG CANCER
     Dosage: 1.1MG PER DAY
     Route: 042
     Dates: start: 20020408, end: 20020710
  2. METOCLOPRAMIDE [Concomitant]
     Indication: NAUSEA
     Dosage: 30MG PER DAY
     Route: 048
     Dates: start: 20020410, end: 20020616
  3. HYDROCORTISONE [Concomitant]
     Dosage: 100MG PER DAY
     Route: 042
     Dates: start: 20020421
  4. SCOPOLAMINE [Concomitant]
     Dosage: 1U PER DAY
     Route: 014
     Dates: start: 20020709
  5. METOCLOPRAMIDE [Concomitant]
     Indication: NAUSEA
     Dosage: 2U PER DAY
     Route: 042
     Dates: start: 20020408, end: 20020614
  6. ATORVASTATIN [Concomitant]
     Dosage: 20UG PER DAY
     Route: 048
     Dates: start: 20020408, end: 20020725
  7. BENIDIPINE HYDROCHLORIDE [Concomitant]
     Dosage: 8UG PER DAY
     Route: 048
     Dates: start: 20020408, end: 20020725
  8. ALLOPURINOL [Concomitant]
     Dosage: 200MG PER DAY
     Route: 048
     Dates: start: 20020408, end: 20020725
  9. ETHYL ICOSAPENTATE [Concomitant]
     Dosage: 1800MG PER DAY
     Route: 048
     Dates: start: 20020408, end: 20020725
  10. KETOPROFEN [Concomitant]
     Route: 061
     Dates: start: 20020408, end: 20020725
  11. PANTETHINE [Concomitant]
     Dosage: 3G PER DAY
     Route: 048
     Dates: start: 20020408, end: 20020725
  12. MAGNESIUM OXIDE [Concomitant]
     Dosage: 990MG PER DAY
     Route: 048
     Dates: start: 20020408, end: 20020725

REACTIONS (11)
  - Neutrophil count decreased [Recovered/Resolved]
  - Nausea [Recovered/Resolved]
  - Red blood cell count decreased [Not Recovered/Not Resolved]
  - Haemoglobin decreased [Not Recovered/Not Resolved]
  - Injection site reaction [Recovered/Resolved]
  - White blood cell count decreased [Recovered/Resolved]
  - Platelet count decreased [Recovered/Resolved]
  - Rash papular [Recovered/Resolved]
  - Alopecia [Recovered/Resolved]
  - Hypoaesthesia [Recovering/Resolving]
  - Abdominal distension [Recovered/Resolved]
